FAERS Safety Report 21713312 (Version 2)
Quarter: 2023Q1

REPORT INFORMATION
  Report Type: Spontaneous
  Country: US (occurrence: US)
  Receive Date: 20221212
  Receipt Date: 20230119
  Transmission Date: 20230418
  Serious: Yes (Hospitalization, Other)
  Sender: FDA-Public Use
  Company Number: US-002147023-NVSC2022US285396

PATIENT
  Age: 56 Year
  Sex: Female
  Weight: 64.853 kg

DRUGS (2)
  1. PIQRAY [Suspect]
     Active Substance: ALPELISIB
     Indication: Breast cancer
     Dosage: UNK
     Route: 048
     Dates: start: 20221117, end: 20221128
  2. INSULIN NOS [Concomitant]
     Active Substance: INSULIN NOS
     Indication: Product used for unknown indication
     Dosage: UNK
     Route: 065

REACTIONS (6)
  - Diabetic ketoacidosis [Unknown]
  - Hyperglycaemia [Recovered/Resolved with Sequelae]
  - Thirst [Unknown]
  - Dry mouth [Unknown]
  - Fatigue [Unknown]
  - Polydipsia [Unknown]

NARRATIVE: CASE EVENT DATE: 20221128
